FAERS Safety Report 8389572-2 (Version None)
Quarter: 2012Q2

REPORT INFORMATION
  Report Type: 
  Country: None (occurrence: None)
  Receive Date: 20120528
  Receipt Date: 20120521
  Transmission Date: 20120825
  Serious: No
  Sender: FDA-Public Use
  Company Number: CHPA2012DK009716

PATIENT
  Sex: Male

DRUGS (1)
  1. LAMISIL [Suspect]
     Indication: TINEA PEDIS
     Dosage: UNK, UNK
     Route: 061
     Dates: start: 20120319

REACTIONS (5)
  - APPLICATION SITE EXFOLIATION [None]
  - INCORRECT DOSE ADMINISTERED [None]
  - OVERDOSE [None]
  - APPLICATION SITE ULCER [None]
  - APPLICATION SITE ERYTHEMA [None]
